FAERS Safety Report 8264671-4 (Version None)
Quarter: 2012Q2

REPORT INFORMATION
  Report Type: 
  Country: None (occurrence: None)
  Receive Date: 20120406
  Receipt Date: 20120402
  Transmission Date: 20120825
  Serious: Yes (Death)
  Sender: FDA-Public Use
  Company Number: FR-SANOFI-AVENTIS-2011SA000838

PATIENT
  Age: 63 Year
  Sex: Male

DRUGS (15)
  1. ACETAMINOPHEN [Concomitant]
     Route: 042
     Dates: start: 20101121, end: 20101124
  2. CEFAZOLIN [Concomitant]
     Indication: ANTIBIOTIC PROPHYLAXIS
     Route: 051
     Dates: start: 20101121, end: 20101122
  3. HEPARIN SODIUM [Suspect]
     Indication: THROMBOSIS PROPHYLAXIS
     Route: 042
     Dates: start: 20101121, end: 20101201
  4. ZOLPIDEM TARTRATE [Concomitant]
     Route: 048
  5. ACETAMINOPHEN AND TRAMADOL HCL [Concomitant]
     Route: 048
     Dates: start: 20101031, end: 20101122
  6. DRUGS FOR TREATMENT OF PEPTIC ULCER [Concomitant]
     Dates: start: 20101121
  7. LOVENOX [Suspect]
     Indication: THROMBOSIS PROPHYLAXIS
     Route: 058
     Dates: end: 20101121
  8. MORPHINE [Concomitant]
     Route: 042
     Dates: start: 20101121, end: 20101123
  9. SOLUTIONS FOR PARENTERAL NUTRITION [Concomitant]
     Route: 051
     Dates: start: 20101121
  10. PYOSTACINE [Concomitant]
     Route: 048
     Dates: start: 20101031
  11. ACUPAN [Concomitant]
     Route: 042
     Dates: start: 20101121, end: 20101122
  12. HEPARIN SODIUM [Suspect]
     Route: 042
     Dates: start: 20101201, end: 20101201
  13. ROSUVASTATIN [Concomitant]
     Route: 048
  14. PLAVIX [Concomitant]
     Route: 048
  15. TRAMADOL HCL [Concomitant]
     Route: 048
     Dates: start: 20101121, end: 20101122

REACTIONS (2)
  - THROMBOSIS [None]
  - HEPARIN-INDUCED THROMBOCYTOPENIA [None]
